FAERS Safety Report 21796056 (Version 1)
Quarter: 2022Q4

REPORT INFORMATION
  Report Type: Spontaneous
  Country: US (occurrence: None)
  Receive Date: 20221228
  Receipt Date: 20221228
  Transmission Date: 20230112
  Serious: Yes (Death)
  Sender: FDA-Public Use
  Company Number: None

PATIENT
  Sex: Male
  Weight: 82.55 kg

DRUGS (17)
  1. LENALIDOMIDE [Suspect]
     Active Substance: LENALIDOMIDE
     Indication: Plasma cell myeloma
     Dosage: FREQUENCY : DAILY;?
     Route: 048
  2. ALBUTEROL [Concomitant]
     Active Substance: ALBUTEROL
  3. ANORO ELLIPTA [Concomitant]
     Active Substance: UMECLIDINIUM BROMIDE\VILANTEROL TRIFENATATE
  4. ATORVASTATIN [Concomitant]
     Active Substance: ATORVASTATIN
  5. CINNAMON [Concomitant]
     Active Substance: CINNAMON
  6. CRANBERRY [Concomitant]
     Active Substance: CRANBERRY
  7. FISH OIL [Concomitant]
     Active Substance: FISH OIL
  8. IPRATROPIUM [Concomitant]
     Active Substance: IPRATROPIUM
  9. ALBUTEROL [Concomitant]
     Active Substance: ALBUTEROL
  10. LOSARTAN [Concomitant]
     Active Substance: LOSARTAN
  11. METFORMIN [Concomitant]
     Active Substance: METFORMIN HYDROCHLORIDE
  12. METFORMIN [Concomitant]
     Active Substance: METFORMIN HYDROCHLORIDE
  13. METOPROLOL [Concomitant]
     Active Substance: METOPROLOL
  14. VITAMINS [Concomitant]
     Active Substance: VITAMINS
  15. SYNTHROID [Concomitant]
     Active Substance: LEVOTHYROXINE SODIUM
  16. VITAMIN C [Concomitant]
     Active Substance: ASCORBIC ACID
  17. VITAMIN D3 [Concomitant]
     Active Substance: CHOLECALCIFEROL

REACTIONS (1)
  - Death [None]
